FAERS Safety Report 12587813 (Version 3)
Quarter: 2016Q4

REPORT INFORMATION
  Report Type: Spontaneous
  Country: BR (occurrence: BR)
  Receive Date: 20160725
  Receipt Date: 20161026
  Transmission Date: 20170207
  Serious: Yes (Hospitalization, Other)
  Sender: FDA-Public Use
  Company Number: BR-GLAXOSMITHKLINE-BR2015GSK157867

PATIENT
  Age: 37 Year
  Sex: Female
  Weight: 53 kg

DRUGS (6)
  1. LOSARTAN. [Concomitant]
     Active Substance: LOSARTAN
     Indication: BLOOD PRESSURE INCREASED
     Dosage: UNK
  2. BENLYSTA [Suspect]
     Active Substance: BELIMUMAB
     Dosage: PENULTIMATE
     Dates: start: 20160614
  3. LOTAR (AMLODIPINE BESILATE + LOSARTAN POTASSIUM) [Concomitant]
     Indication: BLOOD PRESSURE INCREASED
     Dosage: UNK
  4. BENLYSTA [Suspect]
     Active Substance: BELIMUMAB
     Dosage: LAST INFUSION (SUSPENDED)
     Dates: start: 20160725
  5. BENLYSTA [Suspect]
     Active Substance: BELIMUMAB
     Dosage: UNK
     Dates: start: 201511
  6. BENLYSTA [Suspect]
     Active Substance: BELIMUMAB
     Indication: PRODUCT USED FOR UNKNOWN INDICATION
     Dosage: UNK
     Dates: start: 20151028

REACTIONS (24)
  - Thrombosis [Unknown]
  - Drug hypersensitivity [Recovered/Resolved]
  - Burning sensation [Unknown]
  - Peripheral swelling [Recovering/Resolving]
  - Inappropriate schedule of drug administration [Recovered/Resolved]
  - Social problem [Unknown]
  - Contusion [Unknown]
  - Frustration tolerance decreased [Unknown]
  - Eye pain [Unknown]
  - Arthralgia [Recovering/Resolving]
  - Drug dose omission [Unknown]
  - Arthropathy [Unknown]
  - Urticaria [Unknown]
  - Hypersensitivity [Unknown]
  - Off label use [Recovered/Resolved]
  - Cellulitis [Recovered/Resolved]
  - Alopecia [Unknown]
  - Pyrexia [Unknown]
  - Myalgia [Unknown]
  - Localised oedema [Unknown]
  - Erythema [Unknown]
  - Decreased activity [Unknown]
  - Rash [Unknown]
  - Arthralgia [Unknown]

NARRATIVE: CASE EVENT DATE: 20160620
